FAERS Safety Report 8834214 (Version 2)
Quarter: 2012Q4

REPORT INFORMATION
  Report Type: 
  Country: PE (occurrence: PE)
  Receive Date: 20121010
  Receipt Date: 20121030
  Transmission Date: 20130627
  Serious: Yes (Death)
  Sender: FDA-Public Use
  Company Number: PE-ELI_LILLY_AND_COMPANY-PE201210002920

PATIENT
  Age: 60 Year
  Sex: Female

DRUGS (4)
  1. ALIMTA [Suspect]
     Indication: LUNG ADENOCARCINOMA
     Dosage: 500 mg, unknown
     Route: 065
     Dates: start: 201208
  2. CARBOPLATIN [Concomitant]
     Dosage: one cycle
  3. FOLIC ACID [Concomitant]
     Indication: SUPPLEMENTATION THERAPY
  4. VITAMIN B12 [Concomitant]
     Indication: SUPPLEMENTATION THERAPY

REACTIONS (3)
  - H1N1 influenza [Fatal]
  - Decreased immune responsiveness [Fatal]
  - Off label use [Unknown]
